FAERS Safety Report 7326147-8 (Version None)
Quarter: 2011Q1

REPORT INFORMATION
  Report Type: 
  Country: None (occurrence: None)
  Receive Date: 20110302
  Receipt Date: 20110220
  Transmission Date: 20110831
  Serious: Yes (Other)
  Sender: FDA-Public Use
  Company Number: CN-JNJFOC-20110206506

PATIENT

DRUGS (2)
  1. MESALAZINE [Suspect]
     Indication: DRUG EXPOSURE DURING PREGNANCY
  2. REMICADE [Suspect]
     Indication: DRUG EXPOSURE DURING PREGNANCY

REACTIONS (1)
  - FOETAL DISORDER [None]
